FAERS Safety Report 4632301-6 (Version None)
Quarter: 2005Q2

REPORT INFORMATION
  Report Type: 
  Country: None (occurrence: None)
  Receive Date: 20050401
  Receipt Date: 20050111
  Transmission Date: 20051028
  Serious: Yes (Hospitalization)
  Sender: FDA-Public Use
  Company Number: 04P-163-0272178-00

PATIENT
  Age: 70 Year
  Sex: Male
  Weight: 109.9 kg

DRUGS (23)
  1. DEPAKOTE [Suspect]
     Indication: BIPOLAR DISORDER
     Dosage: 500 MG, 3 IN 1 D, ORAL
     Route: 048
     Dates: start: 19990101, end: 20040701
  2. ATORVASTATIN [Concomitant]
  3. OXAPROZIN [Concomitant]
  4. TOPIRAMATE [Concomitant]
  5. SERTRALINE HYDROCHLORIDE [Concomitant]
  6. CLONAZEPAM [Concomitant]
  7. MIRAPEX [Concomitant]
  8. AMLODIPINE BESYLATE [Concomitant]
  9. BENICAR HZT [Concomitant]
  10. NOVOTHYRAL [Concomitant]
  11. LISINOPRIL [Concomitant]
  12. SERETIDE MITE [Concomitant]
  13. FLUTICASONE PROPIONATE [Concomitant]
  14. SALBUTAMOL [Concomitant]
  15. LITHIUM [Concomitant]
  16. RISPERIDONE [Concomitant]
  17. LEVOTHYROXINE SODIUM [Concomitant]
  18. FEXOFENADINE HYDROCHLORIDE [Concomitant]
  19. ACETYLSALICYLIC ACID SRT [Concomitant]
  20. FISH OIL [Concomitant]
  21. TOLTERODINE TARTRATE [Concomitant]
  22. QUINAZEPAM [Concomitant]
  23. SINGULAIR [Concomitant]

REACTIONS (4)
  - ANTICONVULSANT DRUG LEVEL DECREASED [None]
  - DRUG INEFFECTIVE [None]
  - MANIA [None]
  - PNEUMONIA [None]
